FAERS Safety Report 11779957 (Version 2)
Quarter: 2016Q1

REPORT INFORMATION
  Report Type: Report from Study
  Country: US (occurrence: US)
  Receive Date: 20151125
  Receipt Date: 20160119
  Transmission Date: 20160525
  Serious: No
  Sender: FDA-Public Use
  Company Number: US-AMGEN-USASL2015122936

PATIENT
  Age: 62 Year
  Sex: Female

DRUGS (4)
  1. ROBITUSSIN                         /00482701/ [Suspect]
     Active Substance: MENTHOL
     Indication: PRODUCT USED FOR UNKNOWN INDICATION
     Dosage: UNK
     Route: 065
  2. CORTISONE [Concomitant]
     Active Substance: CORTISONE\HYDROCORTISONE
     Indication: PAIN IN EXTREMITY
     Dosage: UNK
     Route: 065
  3. ENBREL [Suspect]
     Active Substance: ETANERCEPT
     Indication: ANKYLOSING SPONDYLITIS
  4. ENBREL [Suspect]
     Active Substance: ETANERCEPT
     Indication: RHEUMATOID ARTHRITIS
     Dosage: 50 MG, QWK
     Route: 065
     Dates: start: 20151101

REACTIONS (11)
  - Arthralgia [Unknown]
  - Pain in extremity [Unknown]
  - Oropharyngeal pain [Unknown]
  - Dysphonia [Unknown]
  - Throat irritation [Unknown]
  - Dysphagia [Unknown]
  - Dry throat [Unknown]
  - Injection site haemorrhage [Recovered/Resolved]
  - Blood pressure increased [Unknown]
  - Musculoskeletal stiffness [Recovering/Resolving]
  - Injection site bruising [Unknown]

NARRATIVE: CASE EVENT DATE: 201511
